FAERS Safety Report 4564458-X (Version None)
Quarter: 2005Q1

REPORT INFORMATION
  Report Type: 
  Country: None (occurrence: None)
  Receive Date: 20050128
  Receipt Date: 20041110
  Transmission Date: 20050727
  Serious: No
  Sender: FDA-Public Use
  Company Number: US-BRISTOL-MYERS SQUIBB COMPANY-12761474

PATIENT
  Age: 69 Year
  Sex: Male
  Weight: 98 kg

DRUGS (3)
  1. ULTRAVATE [Suspect]
     Indication: DERMATITIS
     Route: 061
  2. INDERAL [Concomitant]
  3. HYZAAR [Concomitant]

REACTIONS (1)
  - DRUG INEFFECTIVE [None]
